FAERS Safety Report 14787981 (Version 1)
Quarter: 2018Q2

REPORT INFORMATION
  Report Type: Spontaneous
  Country: ZA (occurrence: ZA)
  Receive Date: 20180422
  Receipt Date: 20180422
  Transmission Date: 20180711
  Serious: Yes (Disabling)
  Sender: FDA-Public Use
  Company Number: ZA-ROCHE-2101244

PATIENT
  Sex: Female

DRUGS (5)
  1. FOXAIR [Concomitant]
     Active Substance: FLUTICASONE PROPIONATE\SALMETEROL XINAFOATE
     Indication: ASTHMA
  2. XYLOTOX [Concomitant]
     Route: 042
  3. AVASTIN [Suspect]
     Active Substance: BEVACIZUMAB
     Route: 065
     Dates: start: 20171124
  4. AVASTIN [Suspect]
     Active Substance: BEVACIZUMAB
     Route: 065
     Dates: start: 20180119
  5. AVASTIN [Suspect]
     Active Substance: BEVACIZUMAB
     Indication: MACULAR DEGENERATION
     Route: 065
     Dates: start: 20171013

REACTIONS (7)
  - Off label use [Unknown]
  - Blister [Unknown]
  - Blindness transient [Recovered/Resolved]
  - Intentional product use issue [Unknown]
  - Herpes zoster [Unknown]
  - Blood pressure increased [Unknown]
  - Headache [Unknown]
